FAERS Safety Report 9143942 (Version 1)
Quarter: 2013Q1

REPORT INFORMATION
  Report Type: Spontaneous
  Country: US (occurrence: US)
  Receive Date: 20130306
  Receipt Date: 20130306
  Transmission Date: 20140127
  Serious: Yes (Death, Life-Threatening, Hospitalization, Disabling)
  Sender: FDA-Public Use
  Company Number: US-GLAXOSMITHKLINE-A0938408A

PATIENT
  Age: 64 Year
  Sex: Female
  Weight: 120 kg

DRUGS (30)
  1. BENLYSTA [Suspect]
     Indication: SYSTEMIC LUPUS ERYTHEMATOSUS
     Dosage: 1MGK CYCLIC
     Route: 042
     Dates: start: 20110705, end: 20110719
  2. TYLENOL [Concomitant]
     Route: 048
  3. TYLENOL [Concomitant]
     Route: 048
  4. ALBUTEROL [Concomitant]
     Route: 055
  5. ALBUTEROL [Concomitant]
     Dosage: 17G TWICE PER DAY
     Route: 055
  6. ALPRAZOLAM [Concomitant]
     Route: 048
  7. BUMETANIDE [Concomitant]
     Dosage: 1MG TWICE PER DAY
     Route: 048
  8. CALCIUM CARBONATE + VITAMIN D [Concomitant]
     Route: 048
  9. MULTIVITAMIN [Concomitant]
  10. CIMETIDINE [Concomitant]
     Dosage: 400MG PER DAY
     Route: 048
  11. CLINDAMYCIN [Concomitant]
     Dosage: 600MG PER DAY
     Route: 048
  12. CLONIDINE [Concomitant]
     Dosage: .2MG PER DAY
     Route: 048
  13. COLCHICINE [Concomitant]
     Dosage: .6MG PER DAY
     Route: 048
  14. NEXIUM [Concomitant]
     Dosage: 40MG PER DAY
     Route: 048
  15. DIFLUCAN [Concomitant]
     Route: 048
  16. GLYBURIDE [Concomitant]
  17. FLONASE [Concomitant]
     Route: 045
  18. UNKNOWN [Concomitant]
     Dosage: 200MG PER DAY
     Route: 048
  19. POTASSIUM [Concomitant]
     Dosage: 20MEQ PER DAY
     Route: 048
  20. POTASSIUM [Concomitant]
     Dosage: 10MEQ PER DAY
     Route: 048
  21. PREDNISONE [Concomitant]
     Indication: SYSTEMIC LUPUS ERYTHEMATOSUS
     Dosage: 10MG PER DAY
     Route: 048
  22. LOSARTAN [Concomitant]
  23. COUMADIN [Concomitant]
     Dosage: 3MG PER DAY
     Route: 048
  24. HYDROXYZINE [Concomitant]
     Dosage: 50MG PER DAY
     Route: 048
  25. AMARYL [Concomitant]
     Dosage: 1MG PER DAY
     Route: 048
  26. MAGNESIUM HYDROXIDE [Concomitant]
     Route: 048
  27. LACTOBACILLUS ACIDOPHILUS [Concomitant]
     Route: 048
  28. PYRIDIUM [Concomitant]
     Dosage: 200MG PER DAY
     Route: 048
  29. OCEAN [Concomitant]
     Route: 045
  30. DIOVAN [Concomitant]
     Dosage: 80MG PER DAY
     Route: 048

REACTIONS (21)
  - Respiratory failure [Fatal]
  - Pulseless electrical activity [Fatal]
  - Cardiac arrest [Recovered/Resolved with Sequelae]
  - Respiratory arrest [Not Recovered/Not Resolved]
  - Hypoxia [Recovered/Resolved with Sequelae]
  - Local swelling [Not Recovered/Not Resolved]
  - Ejection fraction decreased [Not Recovered/Not Resolved]
  - Chills [Not Recovered/Not Resolved]
  - Skin discolouration [Not Recovered/Not Resolved]
  - Retching [Not Recovered/Not Resolved]
  - Angioedema [Fatal]
  - Dyspnoea [Not Recovered/Not Resolved]
  - Nausea [Not Recovered/Not Resolved]
  - Pyrexia [Not Recovered/Not Resolved]
  - Tissue anoxia [Not Recovered/Not Resolved]
  - Renal failure acute [Recovered/Resolved]
  - Glucose tolerance impaired [Not Recovered/Not Resolved]
  - Hypersensitivity [Fatal]
  - Discomfort [Unknown]
  - Laryngeal oedema [Unknown]
  - Respiratory tract oedema [Unknown]
